FAERS Safety Report 12387861 (Version 1)
Quarter: 2016Q2

REPORT INFORMATION
  Report Type: Spontaneous
  Country: GB (occurrence: GB)
  Receive Date: 20160520
  Receipt Date: 20160520
  Transmission Date: 20160815
  Serious: Yes (Other)
  Sender: FDA-Public Use
  Company Number: GB-AMGEN-GBRSP2016062854

PATIENT
  Age: 68 Year
  Sex: Male

DRUGS (1)
  1. ENBREL [Suspect]
     Active Substance: ETANERCEPT
     Indication: PRODUCT USED FOR UNKNOWN INDICATION
     Dosage: 25 MG, 2X/WEEK (TWICE WEEKLY)
     Route: 065

REACTIONS (7)
  - Seizure [Unknown]
  - Malaise [Unknown]
  - Fall [Unknown]
  - Localised infection [Unknown]
  - Hip fracture [Unknown]
  - Urinary tract infection [Unknown]
  - Cerebrovascular accident [Unknown]
